FAERS Safety Report 21871409 (Version 4)
Quarter: 2023Q1

REPORT INFORMATION
  Report Type: Spontaneous
  Country: JP (occurrence: JP)
  Receive Date: 20230117
  Receipt Date: 20230223
  Transmission Date: 20230418
  Serious: No
  Sender: FDA-Public Use
  Company Number: JP-PFIZER INC-202300005104

PATIENT
  Sex: Female

DRUGS (1)
  1. ENBREL [Suspect]
     Active Substance: ETANERCEPT
     Dosage: 50 MG, WEEKLY

REACTIONS (6)
  - Panic reaction [Unknown]
  - Wrong technique in device usage process [Unknown]
  - Underdose [Unknown]
  - Device difficult to use [Unknown]
  - Device issue [Unknown]
  - Device leakage [Unknown]
